FAERS Safety Report 13142027 (Version 3)
Quarter: 2017Q2

REPORT INFORMATION
  Report Type: Spontaneous
  Country: JP (occurrence: JP)
  Receive Date: 20170123
  Receipt Date: 20170620
  Transmission Date: 20170830
  Serious: Yes (Death, Disabling)
  Sender: FDA-Public Use
  Company Number: JP-PFIZER INC-2017027339

PATIENT
  Age: 66 Year
  Sex: Male
  Weight: 58 kg

DRUGS (66)
  1. CAMPTO [Suspect]
     Active Substance: IRINOTECAN
     Dosage: 192.7 MG, 1X/DAY
     Route: 041
     Dates: start: 20140821, end: 20140821
  2. CAMPTO [Suspect]
     Active Substance: IRINOTECAN
     Dosage: 192.7 MG, 1X/DAY
     Route: 041
     Dates: start: 20141204, end: 20141204
  3. LEVOFOLINATE [Suspect]
     Active Substance: LEVOLEUCOVORIN CALCIUM
     Dosage: 321.2 MG, 1X/DAY
     Route: 041
     Dates: start: 20140703, end: 20140703
  4. LEVOFOLINATE [Suspect]
     Active Substance: LEVOLEUCOVORIN CALCIUM
     Dosage: 321.2 MG, 1X/DAY
     Route: 041
     Dates: start: 20140925, end: 20140925
  5. ELPLAT [Suspect]
     Active Substance: OXALIPLATIN
     Dosage: 104.4 MG, 1X/DAY
     Route: 041
     Dates: start: 20140724, end: 20140724
  6. 5-FU /00098801/ [Suspect]
     Active Substance: FLUOROURACIL
     Dosage: 3854.4 MG, ONCE IN 2 DAYS
     Route: 041
     Dates: start: 20141009, end: 20141009
  7. 5-FU /00098801/ [Suspect]
     Active Substance: FLUOROURACIL
     Dosage: 3854.4 MG, ONCE IN 2 DAYS
     Route: 041
     Dates: start: 20141204, end: 20141204
  8. EMEND [Concomitant]
     Active Substance: APREPITANT
     Dosage: UNK
     Dates: start: 20140529, end: 20141206
  9. ATELEC [Concomitant]
     Active Substance: CILNIDIPINE
     Dosage: UNK
  10. AMPICILLIN AND SULBACTAM [Concomitant]
     Active Substance: AMPICILLIN SODIUM\SULBACTAM SODIUM
     Dosage: UNK
     Dates: start: 20150203, end: 20150207
  11. CAMPTO [Suspect]
     Active Substance: IRINOTECAN
     Dosage: 240.9 MG, 1X/DAY
     Route: 041
     Dates: start: 20140619, end: 20140619
  12. CAMPTO [Suspect]
     Active Substance: IRINOTECAN
     Dosage: 240.9 MG, 1X/DAY
     Route: 041
     Dates: start: 20140703, end: 20140703
  13. ELPLAT [Suspect]
     Active Substance: OXALIPLATIN
     Dosage: 104.4 MG, 1X/DAY
     Route: 041
     Dates: start: 20140821, end: 20140821
  14. ELPLAT [Suspect]
     Active Substance: OXALIPLATIN
     Dosage: 104.4 MG, 1X/DAY
     Route: 041
     Dates: start: 20141009, end: 20141009
  15. CRAVIT [Concomitant]
     Active Substance: LEVOFLOXACIN
     Dosage: UNK
     Dates: start: 20141217, end: 20141223
  16. BAKTAR [Concomitant]
     Active Substance: SULFAMETHOXAZOLE\TRIMETHOPRIM
     Dosage: UNK
     Dates: start: 20150114, end: 20150122
  17. LEVOFOLINATE [Suspect]
     Active Substance: LEVOLEUCOVORIN CALCIUM
     Dosage: 321.2 MG, 1X/DAY
     Route: 041
     Dates: start: 20140619, end: 20140619
  18. 5-FU /00098801/ [Concomitant]
     Active Substance: FLUOROURACIL
     Dosage: UNK
  19. ALOXI [Concomitant]
     Active Substance: PALONOSETRON HYDROCHLORIDE
     Dosage: UNK
     Dates: start: 20140529, end: 20141204
  20. TRIAZOLAM. [Concomitant]
     Active Substance: TRIAZOLAM
     Dosage: UNK
  21. CRESTOR [Concomitant]
     Active Substance: ROSUVASTATIN CALCIUM
     Dosage: UNK
  22. METHYLPREDNISOLONE SODIUM SUCCINATE. [Concomitant]
     Active Substance: METHYLPREDNISOLONE SODIUM SUCCINATE
     Dosage: UNK
     Dates: start: 20150114, end: 20150205
  23. LEVOFOLINATE [Suspect]
     Active Substance: LEVOLEUCOVORIN CALCIUM
     Dosage: 321.2 MG, 1X/DAY
     Route: 041
     Dates: start: 20140724, end: 20140724
  24. LEVOFOLINATE [Suspect]
     Active Substance: LEVOLEUCOVORIN CALCIUM
     Dosage: 321.2 MG, 1X/DAY
     Route: 041
     Dates: start: 20140911, end: 20140911
  25. LEVOFOLINATE [Suspect]
     Active Substance: LEVOLEUCOVORIN CALCIUM
     Dosage: 321.2 MG, 1X/DAY
     Route: 041
     Dates: start: 20141106, end: 20141106
  26. DECADRON [Concomitant]
     Active Substance: DEXAMETHASONE
     Dosage: UNK
     Dates: start: 20140530, end: 20141206
  27. BACTRAMIN [Concomitant]
     Active Substance: SULFAMETHOXAZOLE\TRIMETHOPRIM
     Dosage: UNK
     Dates: start: 20150123
  28. CAMPTO [Suspect]
     Active Substance: IRINOTECAN
     Indication: PANCREATIC CARCINOMA
     Dosage: 240.9 MG, 1X/DAY
     Route: 041
     Dates: start: 20140529, end: 20140529
  29. CAMPTO [Suspect]
     Active Substance: IRINOTECAN
     Dosage: 192.7 MG, 1X/DAY
     Route: 041
     Dates: start: 20140724, end: 20140724
  30. CAMPTO [Suspect]
     Active Substance: IRINOTECAN
     Dosage: 192.7 MG, 1X/DAY
     Route: 041
     Dates: start: 20140807, end: 20140807
  31. CAMPTO [Suspect]
     Active Substance: IRINOTECAN
     Dosage: 192.7 MG, 1X/DAY
     Route: 041
     Dates: start: 20140925, end: 20140925
  32. CAMPTO [Suspect]
     Active Substance: IRINOTECAN
     Dosage: 192.7 MG, 1X/DAY
     Route: 041
     Dates: start: 20141120, end: 20141120
  33. LEVOFOLINATE [Suspect]
     Active Substance: LEVOLEUCOVORIN CALCIUM
     Indication: PANCREATIC CARCINOMA
     Dosage: 321.2 MG, 1X/DAY
     Route: 041
     Dates: start: 20140529, end: 20140529
  34. LEVOFOLINATE [Suspect]
     Active Substance: LEVOLEUCOVORIN CALCIUM
     Dosage: 321.2 MG, 1X/DAY
     Route: 041
     Dates: start: 20141204, end: 20141204
  35. 5-FU /00098801/ [Suspect]
     Active Substance: FLUOROURACIL
     Indication: PANCREATIC CARCINOMA
     Dosage: 3854.4 MG, ONCE IN 2 DAYS
     Route: 041
     Dates: start: 20140529, end: 20140529
  36. 5-FU /00098801/ [Suspect]
     Active Substance: FLUOROURACIL
     Dosage: 3854.4 MG, ONCE IN 2 DAYS
     Route: 041
     Dates: start: 20140703, end: 20140703
  37. 5-FU /00098801/ [Suspect]
     Active Substance: FLUOROURACIL
     Dosage: 3854.4 MG, ONCE IN 2 DAYS
     Route: 041
     Dates: start: 20140911, end: 20140911
  38. 5-FU /00098801/ [Suspect]
     Active Substance: FLUOROURACIL
     Dosage: 3854.4 MG, ONCE IN 2 DAYS
     Route: 041
     Dates: start: 20141106, end: 20141106
  39. ELPLAT [Suspect]
     Active Substance: OXALIPLATIN
     Indication: PANCREATIC CARCINOMA
     Dosage: 136.5 MG, 1X/DAY
     Route: 041
     Dates: start: 20140529, end: 20140529
  40. ELPLAT [Suspect]
     Active Substance: OXALIPLATIN
     Dosage: 104.4 MG, 1X/DAY
     Route: 041
     Dates: start: 20140703, end: 20140703
  41. ELPLAT [Suspect]
     Active Substance: OXALIPLATIN
     Dosage: 104.4 MG, 1X/DAY
     Route: 041
     Dates: start: 20140911, end: 20140911
  42. ELPLAT [Suspect]
     Active Substance: OXALIPLATIN
     Dosage: 80.3 MG, 1X/DAY
     Route: 041
     Dates: start: 20141106, end: 20141106
  43. 5-FU /00098801/ [Suspect]
     Active Substance: FLUOROURACIL
     Dosage: 3854.4 MG, ONCE IN 2 DAYS
     Route: 041
     Dates: start: 20140821, end: 20140821
  44. 5-FU /00098801/ [Suspect]
     Active Substance: FLUOROURACIL
     Dosage: 3854.4 MG, ONCE IN 2 DAYS
     Route: 041
     Dates: start: 20140925, end: 20140925
  45. 5-FU /00098801/ [Suspect]
     Active Substance: FLUOROURACIL
     Dosage: 3854.4 MG, ONCE IN 2 DAYS
     Route: 041
     Dates: start: 20141120, end: 20141120
  46. REBAMIPIDE [Concomitant]
     Active Substance: REBAMIPIDE
     Dosage: UNK
  47. PREDNISOLONE. [Concomitant]
     Active Substance: PREDNISOLONE
     Dosage: UNK
     Dates: start: 20141222, end: 20150126
  48. CAMPTO [Suspect]
     Active Substance: IRINOTECAN
     Dosage: 192.7 MG, 1X/DAY
     Route: 041
     Dates: start: 20141009, end: 20141009
  49. CAMPTO [Suspect]
     Active Substance: IRINOTECAN
     Dosage: 192.7 MG, 1X/DAY
     Route: 041
     Dates: start: 20141106, end: 20141106
  50. LEVOFOLINATE [Suspect]
     Active Substance: LEVOLEUCOVORIN CALCIUM
     Dosage: 321.2 MG, 1X/DAY
     Route: 041
     Dates: start: 20140807, end: 20140807
  51. LEVOFOLINATE [Suspect]
     Active Substance: LEVOLEUCOVORIN CALCIUM
     Dosage: 321.2 MG, 1X/DAY
     Route: 041
     Dates: start: 20140821, end: 20140821
  52. LEVOFOLINATE [Suspect]
     Active Substance: LEVOLEUCOVORIN CALCIUM
     Dosage: 321.2 MG, 1X/DAY
     Route: 041
     Dates: start: 20141009, end: 20141009
  53. LEVOFOLINATE [Suspect]
     Active Substance: LEVOLEUCOVORIN CALCIUM
     Dosage: 321.2 MG, 1X/DAY
     Route: 041
     Dates: start: 20141120, end: 20141120
  54. ELPLAT [Suspect]
     Active Substance: OXALIPLATIN
     Dosage: 104.4 MG, 1X/DAY
     Route: 041
     Dates: start: 20140619, end: 20140619
  55. ELPLAT [Suspect]
     Active Substance: OXALIPLATIN
     Dosage: 104.4 MG, 1X/DAY
     Route: 041
     Dates: start: 20140925, end: 20140925
  56. 5-FU /00098801/ [Suspect]
     Active Substance: FLUOROURACIL
     Dosage: 3854.4 MG, ONCE IN 2 DAYS
     Route: 041
     Dates: start: 20140724, end: 20140724
  57. DEXAMETHASONE. [Concomitant]
     Active Substance: DEXAMETHASONE
     Dosage: UNK
     Route: 048
  58. APREPITANT. [Concomitant]
     Active Substance: APREPITANT
     Dosage: UNK
     Dates: start: 20140529, end: 20141206
  59. NEXIUM [Concomitant]
     Active Substance: ESOMEPRAZOLE MAGNESIUM
     Dosage: UNK
  60. CAMPTO [Suspect]
     Active Substance: IRINOTECAN
     Dosage: 192.7 MG, 1X/DAY
     Route: 041
     Dates: start: 20140911, end: 20140911
  61. ELPLAT [Suspect]
     Active Substance: OXALIPLATIN
     Dosage: 104.4 MG, 1X/DAY
     Route: 041
     Dates: start: 20140807, end: 20140807
  62. 5-FU /00098801/ [Suspect]
     Active Substance: FLUOROURACIL
     Dosage: 3854.4 MG, ONCE IN 2 DAYS
     Route: 041
     Dates: start: 20140619, end: 20140619
  63. 5-FU /00098801/ [Suspect]
     Active Substance: FLUOROURACIL
     Dosage: 3854.4 MG, ONCE IN 2 DAYS
     Route: 041
     Dates: start: 20140807, end: 20140807
  64. DEXART [Concomitant]
     Active Substance: DEXAMETHASONE SODIUM PHOSPHATE
     Dosage: UNK
     Dates: start: 20140529, end: 20141204
  65. BUFFERIN [Concomitant]
     Active Substance: ASPIRIN
     Dosage: UNK
  66. MINZAIN [Concomitant]
     Active Substance: TRIAZOLAM
     Dosage: UNK

REACTIONS (3)
  - Peripheral sensory neuropathy [Recovering/Resolving]
  - Pneumonitis [Fatal]
  - Pneumocystis jirovecii pneumonia [Recovering/Resolving]

NARRATIVE: CASE EVENT DATE: 20141120
